FAERS Safety Report 9730359 (Version 2)
Quarter: 2014Q1

REPORT INFORMATION
  Report Type: Report from Study
  Country: US (occurrence: US)
  Receive Date: 20131202
  Receipt Date: 20140307
  Transmission Date: 20141002
  Serious: Yes (Hospitalization, Other)
  Sender: FDA-Public Use
  Company Number: US-JNJFOC-20131115844

PATIENT
  Sex: Female
  Weight: 92.99 kg

DRUGS (6)
  1. REMICADE [Suspect]
     Indication: CROHN^S DISEASE
     Route: 042
     Dates: start: 200610, end: 200701
  2. REMICADE [Suspect]
     Indication: CROHN^S DISEASE
     Dosage: DOSE DOUBLED, EVERY 6 WEEKS.
     Route: 042
     Dates: start: 200701, end: 20131003
  3. IMURAN [Concomitant]
     Indication: IMMUNE SYSTEM DISORDER
     Dosage: 50 MG, 5 TABLETS ONCE DAILY
     Route: 048
     Dates: start: 200610
  4. IMURAN [Concomitant]
     Indication: IMMUNE SYSTEM DISORDER
     Dosage: QUANTITY 450 SUPPLIED FOR 90 DAYS
     Route: 048
     Dates: start: 20131030
  5. METFORMIN [Concomitant]
     Indication: DIABETES MELLITUS
     Route: 048
     Dates: start: 1995
  6. METFORMIN [Concomitant]
     Indication: DIABETES MELLITUS
     Dosage: QUANTITY 180 SUPPLIED FOR 90 DAYS
     Route: 048
     Dates: start: 20140115

REACTIONS (3)
  - Cyst [Recovered/Resolved]
  - Staphylococcal infection [Recovering/Resolving]
  - Drug ineffective [Unknown]
